FAERS Safety Report 10844309 (Version 1)
Quarter: 2015Q1

REPORT INFORMATION
  Report Type: Report from Study
  Country: IT (occurrence: IT)
  Receive Date: 20150220
  Receipt Date: 20150220
  Transmission Date: 20150721
  Serious: Yes (Hospitalization)
  Sender: FDA-Public Use
  Company Number: IT-SA-2015SA019351

PATIENT
  Age: 39 Year
  Sex: Male

DRUGS (1)
  1. CEREZYME [Suspect]
     Active Substance: IMIGLUCERASE
     Indication: GAUCHER^S DISEASE
     Dosage: 4 VIALS
     Route: 042
     Dates: end: 20150130

REACTIONS (6)
  - Loss of consciousness [Recovered/Resolved]
  - Fall [Unknown]
  - Foaming at mouth [Recovered/Resolved]
  - Agitation [Recovered/Resolved]
  - Anger [Recovered/Resolved]
  - Epilepsy [Recovered/Resolved]

NARRATIVE: CASE EVENT DATE: 20150212
